FAERS Safety Report 16500552 (Version 1)
Quarter: 2019Q3

REPORT INFORMATION
  Report Type: Spontaneous
  Country: US (occurrence: US)
  Receive Date: 20190701
  Receipt Date: 20190701
  Transmission Date: 20191004
  Serious: No
  Sender: FDA-Public Use
  Company Number: US-GALDERMA-US18047447

PATIENT
  Sex: Female

DRUGS (1)
  1. ORACEA [Suspect]
     Active Substance: DOXYCYCLINE
     Indication: PRODUCT USED FOR UNKNOWN INDICATION
     Dosage: 40MG
     Route: 048

REACTIONS (1)
  - Fungal infection [Unknown]
